FAERS Safety Report 6572506-0 (Version None)
Quarter: 2010Q1

REPORT INFORMATION
  Report Type: 
  Country: None (occurrence: None)
  Receive Date: 20100205
  Receipt Date: 20100202
  Transmission Date: 20100710
  Serious: Yes (Other)
  Sender: FDA-Public Use
  Company Number: GB-MERCK-0909GBR00100

PATIENT
  Sex: Female

DRUGS (2)
  1. ZOCOR [Suspect]
     Route: 048
  2. INSULIN [Concomitant]
     Route: 065

REACTIONS (2)
  - FEELING ABNORMAL [None]
  - TEMPORAL LOBE EPILEPSY [None]
